FAERS Safety Report 5086579-8 (Version None)
Quarter: 2006Q3

REPORT INFORMATION
  Report Type: 
  Country: None (occurrence: None)
  Receive Date: 20060823
  Receipt Date: 20060703
  Transmission Date: 20061208
  Serious: Yes (Death, Other)
  Sender: FDA-Public Use
  Company Number: JP-JPN-A200602462

PATIENT
  Age: 74 Year
  Sex: Female

DRUGS (12)
  1. PAXIL [Suspect]
     Indication: DEPRESSION
     Dosage: 20MG PER DAY
     Route: 048
  2. CIMETIDINE [Concomitant]
     Route: 065
  3. ARTIST [Concomitant]
     Route: 048
  4. ALDACTONE A [Concomitant]
     Route: 048
  5. LASIX [Concomitant]
     Route: 065
  6. MOBIC [Concomitant]
     Route: 048
  7. LANIRAPID [Concomitant]
     Route: 048
  8. UNKNOWN [Concomitant]
     Route: 048
  9. RENIVACE [Concomitant]
     Route: 048
  10. AMOXAN [Concomitant]
     Route: 048
  11. SULPIRIDE [Concomitant]
     Route: 065
  12. SEDIEL [Concomitant]
     Route: 048

REACTIONS (2)
  - HALLUCINATION [None]
  - TREMOR [None]
